FAERS Safety Report 4873736-6 (Version None)
Quarter: 2006Q1

REPORT INFORMATION
  Report Type: 
  Country: None (occurrence: None)
  Receive Date: 20060106
  Receipt Date: 20051213
  Transmission Date: 20060701
  Serious: Yes (Hospitalization, Disabling)
  Sender: FDA-Public Use
  Company Number: 2005AP06421

PATIENT
  Age: 20485 Day
  Sex: Female
  Weight: 56 kg

DRUGS (1)
  1. MARCAINE [Suspect]
     Indication: SPINAL ANAESTHESIA
     Route: 037
     Dates: start: 20051202, end: 20051202

REACTIONS (4)
  - DRUG TOXICITY [None]
  - HYPOAESTHESIA [None]
  - INJECTION SITE NERVE DAMAGE [None]
  - PAIN IN EXTREMITY [None]
